FAERS Safety Report 22632670 (Version 2)
Quarter: 2023Q2

REPORT INFORMATION
  Report Type: Other
  Country: IT (occurrence: IT)
  Receive Date: 20230623
  Receipt Date: 20230630
  Transmission Date: 20230722
  Serious: Yes (Hospitalization, Other)
  Sender: FDA-Public Use
  Company Number: IT-MINISAL02-930845

PATIENT
  Age: 21 Year
  Sex: Male

DRUGS (4)
  1. TACROLIMUS [Suspect]
     Active Substance: TACROLIMUS
     Indication: Liver transplant
     Dosage: 4 MG + 3 MG + 1.5 MG /DAY
     Dates: start: 202111
  2. MESALAMINE [Suspect]
     Active Substance: MESALAMINE
     Indication: Colitis ulcerative
     Dosage: 1600 + 1600 MG/DAY, DRUG SUSPENDED ON 06/03
     Dates: start: 20150101, end: 20230306
  3. DEURSIL [Concomitant]
     Active Substance: URSODIOL
     Indication: Cholangitis sclerosing
     Dosage: 450 MG/DAY, THE DEURSIL WAS CONTINUED AT THE SAME DOSAGE
  4. AZATHIOPRINE [Concomitant]
     Active Substance: AZATHIOPRINE
     Indication: Liver transplant
     Dosage: 100 + 75 MG/DAY, REDUCED TO 50+50 MG/DAY FROM 10/03

REACTIONS (1)
  - Papilloedema [Recovered/Resolved]

NARRATIVE: CASE EVENT DATE: 20230301
